FAERS Safety Report 20557520 (Version 2)
Quarter: 2022Q2

REPORT INFORMATION
  Report Type: Other
  Country: TW (occurrence: None)
  Receive Date: 20220307
  Receipt Date: 20220506
  Transmission Date: 20220721
  Serious: Yes (Hospitalization, Other)
  Sender: FDA-Public Use
  Company Number: TW-ROCHE-3022515

PATIENT
  Age: 81 Year
  Sex: Female

DRUGS (1)
  1. AVASTIN [Suspect]
     Active Substance: BEVACIZUMAB
     Indication: Colorectal cancer metastatic
     Route: 065

REACTIONS (4)
  - Sepsis [Recovered/Resolved]
  - Ulcer [Unknown]
  - Pulmonary oedema [Unknown]
  - Renal failure [Unknown]

NARRATIVE: CASE EVENT DATE: 20220201
